FAERS Safety Report 6451968-3 (Version None)
Quarter: 2009Q4

REPORT INFORMATION
  Report Type: 
  Country: None (occurrence: None)
  Receive Date: 20091123
  Receipt Date: 20091023
  Transmission Date: 20100525
  Serious: No
  Sender: FDA-Public Use
  Company Number: US-BAYER-200916021BCC

PATIENT
  Age: 69 Year
  Sex: Male
  Weight: 91 kg

DRUGS (11)
  1. ALEVE (CAPLET) [Suspect]
     Indication: ARTHRITIS
     Dosage: TOTAL DAILY DOSE: 440 MG  UNIT DOSE: 220 MG
     Route: 048
     Dates: start: 20090707
  2. CRESTOR [Concomitant]
     Route: 065
  3. METFORMIN HCL [Concomitant]
     Route: 065
  4. GLIMEPIRIDE [Concomitant]
     Route: 065
  5. ACTOS [Concomitant]
     Route: 065
  6. LEXAPRO [Concomitant]
     Route: 065
  7. ASPIRIN [Concomitant]
     Route: 065
  8. PRILOSEC [Concomitant]
     Route: 065
  9. METOPROLOL TARTRATE [Concomitant]
     Route: 065
  10. VITAMIN D [Concomitant]
     Route: 065
  11. HORMONE TREATMENT [Concomitant]
     Indication: NEOPLASM MALIGNANT
     Route: 065
     Dates: start: 20080101

REACTIONS (1)
  - URTICARIA [None]
